FAERS Safety Report 6064705-1 (Version None)
Quarter: 2009Q1

REPORT INFORMATION
  Report Type: 
  Country: None (occurrence: None)
  Receive Date: 20090204
  Receipt Date: 20080627
  Transmission Date: 20090719
  Serious: No
  Sender: FDA-Public Use
  Company Number: A0736103A

PATIENT
  Sex: Female

DRUGS (1)
  1. ARIXTRA [Suspect]
     Indication: DRUG USE FOR UNKNOWN INDICATION
     Route: 065

REACTIONS (1)
  - EPISTAXIS [None]
